FAERS Safety Report 6095099-3 (Version None)
Quarter: 2009Q1

REPORT INFORMATION
  Report Type: 
  Country: None (occurrence: None)
  Receive Date: 20090227
  Receipt Date: 20080118
  Transmission Date: 20090719
  Serious: No
  Sender: FDA-Public Use
  Company Number: A0704128A

PATIENT
  Age: 53 Year
  Sex: Female

DRUGS (5)
  1. LAMICTAL [Suspect]
     Indication: BIPOLAR DISORDER
     Dosage: 200MG PER DAY
     Route: 048
     Dates: start: 20071001
  2. WELLBUTRIN [Concomitant]
  3. TOPAMAX [Concomitant]
  4. GEODON [Concomitant]
  5. NEURONTIN [Concomitant]

REACTIONS (1)
  - DEPRESSION [None]
